FAERS Safety Report 7737413-6 (Version None)
Quarter: 2011Q3

REPORT INFORMATION
  Report Type: 
  Country: None (occurrence: None)
  Receive Date: 20110908
  Receipt Date: 20110826
  Transmission Date: 20111222
  Serious: Yes (Hospitalization)
  Sender: FDA-Public Use
  Company Number: US-GLAXOSMITHKLINE-A0698895A

PATIENT
  Age: 50 Year
  Sex: Male
  Weight: 131.8 kg

DRUGS (6)
  1. METOPROLOL TARTRATE [Concomitant]
  2. LISINOPRIL [Concomitant]
  3. NITROGLYCERIN [Concomitant]
  4. METOCLOPRAMIDE [Concomitant]
  5. FOLIC ACID [Concomitant]
  6. AVANDIA [Suspect]
     Indication: TYPE 2 DIABETES MELLITUS
     Dosage: 4MG PER DAY
     Route: 048
     Dates: start: 20021110, end: 20070727

REACTIONS (4)
  - ANXIETY [None]
  - PAIN [None]
  - MYOCARDIAL INFARCTION [None]
  - ACUTE CORONARY SYNDROME [None]
